FAERS Safety Report 6484788-4 (Version None)
Quarter: 2009Q4

REPORT INFORMATION
  Report Type: 
  Country: None (occurrence: None)
  Receive Date: 20091209
  Receipt Date: 20081124
  Transmission Date: 20100525
  Serious: No
  Sender: FDA-Public Use
  Company Number: A0758121A

PATIENT
  Age: 42 Year
  Sex: Female

DRUGS (2)
  1. AVANDAMET [Suspect]
     Dosage: 1TAB TWICE PER DAY
     Route: 048
     Dates: start: 20081114, end: 20081123
  2. BACTRIM [Concomitant]

REACTIONS (2)
  - HEART RATE INCREASED [None]
  - SINUSITIS [None]
